FAERS Safety Report 9373377 (Version 2)
Quarter: 2013Q3

REPORT INFORMATION
  Report Type: Spontaneous
  Country: US (occurrence: US)
  Receive Date: 20130627
  Receipt Date: 20130707
  Transmission Date: 20140515
  Serious: Yes (Other)
  Sender: FDA-Public Use
  Company Number: US-UCBSA-089627

PATIENT
  Age: 78 Year
  Sex: Male
  Weight: 70.76 kg

DRUGS (6)
  1. CIMZIA [Suspect]
     Route: 058
     Dates: start: 20121207, end: 20130604
  2. PREDNISONE [Concomitant]
     Indication: RHEUMATOID ARTHRITIS
     Route: 048
     Dates: start: 20111025
  3. METHOTREXATE [Concomitant]
     Indication: RHEUMATOID ARTHRITIS
     Route: 058
     Dates: start: 20111114
  4. ALENDRONATE [Concomitant]
     Indication: OSTEOPOROSIS
     Route: 048
     Dates: start: 20120301
  5. FOLIC ACID [Concomitant]
     Indication: RHEUMATOID ARTHRITIS
     Dosage: FRI - MON
     Route: 048
     Dates: start: 201205
  6. CALCIUM+D [Concomitant]
     Indication: OSTEOPOROSIS
     Route: 048
     Dates: start: 201201

REACTIONS (1)
  - Herpes zoster [Not Recovered/Not Resolved]
